FAERS Safety Report 8852340 (Version 1)
Quarter: 2012Q4

REPORT INFORMATION
  Report Type: 
  Country: CO (occurrence: CO)
  Receive Date: 20121022
  Receipt Date: 20121022
  Transmission Date: 20130627
  Serious: Yes (Hospitalization)
  Sender: FDA-Public Use
  Company Number: CO-ABBOTT-12P-036-0998350-00

PATIENT
  Age: 40 Year
  Sex: Male

DRUGS (1)
  1. HUMIRA [Suspect]
     Indication: RHEUMATOID ARTHRITIS
     Route: 058
     Dates: start: 20110620, end: 20120813

REACTIONS (4)
  - Decreased appetite [Not Recovered/Not Resolved]
  - Abdominal pain [Not Recovered/Not Resolved]
  - Vomiting [Not Recovered/Not Resolved]
  - Nephrolithiasis [Unknown]
